FAERS Safety Report 5635979-3 (Version None)
Quarter: 2008Q1

REPORT INFORMATION
  Report Type: 
  Country: None (occurrence: None)
  Receive Date: 20080224
  Receipt Date: 20080213
  Transmission Date: 20080703
  Serious: Yes (Other)
  Sender: FDA-Public Use
  Company Number: PHBS2008BR02291

PATIENT
  Age: 30 Year
  Sex: Female
  Weight: 110 kg

DRUGS (1)
  1. FORASEQ [Suspect]
     Indication: ASTHMA

REACTIONS (6)
  - DEVICE MALFUNCTION [None]
  - DYSPNOEA [None]
  - ENDODONTIC PROCEDURE [None]
  - ERYTHEMA [None]
  - HYPERSENSITIVITY [None]
  - WEIGHT INCREASED [None]
